FAERS Safety Report 6191575-3 (Version None)
Quarter: 2009Q2

REPORT INFORMATION
  Report Type: 
  Country: None (occurrence: None)
  Receive Date: 20090515
  Receipt Date: 20090504
  Transmission Date: 20091009
  Serious: Yes (Other)
  Sender: FDA-Public Use
  Company Number: IT-JNJFOC-20090500958

PATIENT
  Age: 48 Year
  Sex: Female

DRUGS (1)
  1. REMICADE [Suspect]
     Indication: DIFFUSE VASCULITIS
     Route: 042
     Dates: start: 20090415

REACTIONS (3)
  - ANGIOEDEMA [None]
  - RESPIRATORY DISTRESS [None]
  - URTICARIA [None]
